FAERS Safety Report 25182895 (Version 1)
Quarter: 2025Q2

REPORT INFORMATION
  Report Type: Spontaneous
  Country: FR (occurrence: FR)
  Receive Date: 20250410
  Receipt Date: 20250410
  Transmission Date: 20250717
  Serious: Yes (Other)
  Sender: CHEPLAPHARM
  Company Number: None

PATIENT
  Age: 30 Year
  Sex: Male

DRUGS (8)
  1. CLONAZEPAM [Suspect]
     Active Substance: CLONAZEPAM
  2. CANNABIS SATIVA SUBSP. INDICA TOP [Suspect]
     Active Substance: CANNABIS SATIVA SUBSP. INDICA TOP
  3. COCAINE [Suspect]
     Active Substance: COCAINE
  4. COCAETHYLENE [Suspect]
     Active Substance: COCAETHYLENE
  5. PREGABALIN [Suspect]
     Active Substance: PREGABALIN
  6. DIAZEPAM [Suspect]
     Active Substance: DIAZEPAM
  7. OXAZEPAM [Suspect]
     Active Substance: OXAZEPAM
  8. TEMAZEPAM [Suspect]
     Active Substance: TEMAZEPAM

REACTIONS (5)
  - Altered state of consciousness [Recovered/Resolved]
  - Miosis [Recovered/Resolved]
  - Drug use disorder [Unknown]
  - Hot flush [Unknown]
  - Scar [Unknown]

NARRATIVE: CASE EVENT DATE: 20241211
